FAERS Safety Report 13818673 (Version 1)
Quarter: 2017Q3

REPORT INFORMATION
  Report Type: Report from Study
  Country: US (occurrence: US)
  Receive Date: 20170731
  Receipt Date: 20170731
  Transmission Date: 20171127
  Serious: No
  Sender: FDA-Public Use
  Company Number: US-EXELIXIS-CABO-17007922

PATIENT
  Sex: Male

DRUGS (6)
  1. MULTIPLE VITAMINS [Concomitant]
     Active Substance: VITAMINS
  2. ELIQUIS [Concomitant]
     Active Substance: APIXABAN
  3. ALLOPURINOL. [Concomitant]
     Active Substance: ALLOPURINOL
  4. SELENIUM [Concomitant]
     Active Substance: SELENIUM
  5. CABOMETYX [Suspect]
     Active Substance: CABOZANTINIB S-MALATE
     Indication: RENAL CANCER
     Dosage: 60 MG, QD
     Route: 048
     Dates: start: 20161217
  6. MAGNESIUM [Concomitant]
     Active Substance: MAGNESIUM

REACTIONS (1)
  - Oropharyngeal pain [Unknown]
